FAERS Safety Report 9292397 (Version 1)
Quarter: 2013Q2

REPORT INFORMATION
  Report Type: Spontaneous
  Country: DE (occurrence: DE)
  Receive Date: 20130516
  Receipt Date: 20130516
  Transmission Date: 20140414
  Serious: Yes (Other)
  Sender: FDA-Public Use
  Company Number: DE-PFIZER INC-2013147955

PATIENT
  Sex: Male

DRUGS (6)
  1. LYRICA [Suspect]
     Indication: PANIC ATTACK
     Dosage: 75 MG, 2X/DAY (MORNING AND EVENING)
  2. LYRICA [Suspect]
     Indication: ANXIETY DISORDER
  3. LYRICA [Suspect]
     Indication: DEPRESSION
  4. VENLAFAXIN PFIZER RETARD [Suspect]
     Indication: PANIC ATTACK
     Dosage: 75 MG IN THE MORNING, 37.5 MG AT NOON
  5. VENLAFAXIN PFIZER RETARD [Suspect]
     Indication: ANXIETY DISORDER
  6. VENLAFAXIN PFIZER RETARD [Suspect]
     Indication: DEPRESSION

REACTIONS (10)
  - Off label use [Unknown]
  - Drug withdrawal syndrome [Unknown]
  - Paraesthesia [Unknown]
  - Illusion [Unknown]
  - Muscle twitching [Unknown]
  - Insomnia [Unknown]
  - Loss of libido [Unknown]
  - Sleep disorder [Unknown]
  - Fatigue [Unknown]
  - Performance status decreased [Unknown]
